FAERS Safety Report 5599499-7 (Version None)
Quarter: 2007Q4

REPORT INFORMATION
  Report Type: 
  Country: None (occurrence: None)
  Receive Date: 20071231
  Receipt Date: 20071019
  Transmission Date: 20080405
  Serious: Yes (Hospitalization)
  Sender: FDA-Public Use
  Company Number: 163100USA

PATIENT
  Age: 2 Year
  Sex: Male

DRUGS (2)
  1. LAMOTRIGINE [Suspect]
     Dosage: 450 MG (150 MG, 3 IN 1 D)
     Dates: start: 20060830
  2. DOXEPIN HCL [Suspect]
     Indication: SLEEP DISORDER

REACTIONS (2)
  - CONVULSION [None]
  - DRUG INEFFECTIVE [None]
